FAERS Safety Report 25847933 (Version 2)
Quarter: 2025Q4

REPORT INFORMATION
  Report Type: Report from Study
  Country: CA (occurrence: CA)
  Receive Date: 20250925
  Receipt Date: 20251013
  Transmission Date: 20260117
  Serious: Yes (Hospitalization, Other)
  Sender: SANOFI AVENTIS
  Company Number: CA-SA-2025SA230764

PATIENT
  Age: 75 Year
  Sex: Male

DRUGS (14)
  1. ISATUXIMAB [Suspect]
     Active Substance: ISATUXIMAB
     Indication: Plasma cell myeloma
     Dosage: 994 MG, QOW (RECEIVED 253MG JUL 29TH PLUS 747 MILLIGRAMS JULY 30TH 2025)
     Route: 042
     Dates: start: 20250729
  2. ISATUXIMAB [Suspect]
     Active Substance: ISATUXIMAB
     Dosage: 994 MG, QW
     Route: 042
     Dates: start: 20250806, end: 20250806
  3. ISATUXIMAB [Suspect]
     Active Substance: ISATUXIMAB
     Dosage: 994 MG, QW
     Route: 042
     Dates: start: 20250813, end: 20250813
  4. ALLOPURINOL [Concomitant]
     Active Substance: ALLOPURINOL
     Dosage: UNK
  5. VALSARTAN [Concomitant]
     Active Substance: VALSARTAN
     Dosage: UNK
  6. AMLODIPINE [Concomitant]
     Active Substance: AMLODIPINE BESYLATE
     Dosage: UNK
  7. METOCLOPRAMIDE [Concomitant]
     Active Substance: METOCLOPRAMIDE
     Dosage: UNK
  8. TAMSULOSIN [Concomitant]
     Active Substance: TAMSULOSIN
     Dosage: UNK
  9. METFORMIN [Concomitant]
     Active Substance: METFORMIN HYDROCHLORIDE
     Dosage: UNK
  10. Magnesium Plus [Concomitant]
     Dosage: UNK
  11. ELIGARD [Concomitant]
     Active Substance: LEUPROLIDE ACETATE
     Dosage: UNK
  12. PANTOPRAZOLE SODIUM [Concomitant]
     Active Substance: PANTOPRAZOLE SODIUM
     Dosage: UNK
  13. ABIRATERONE [Concomitant]
     Active Substance: ABIRATERONE
     Dosage: UNK
  14. PREDNISONE [Concomitant]
     Active Substance: PREDNISONE
     Dosage: UNK

REACTIONS (3)
  - Sepsis [Recovering/Resolving]
  - Blood pressure decreased [Recovering/Resolving]
  - Inappropriate schedule of product administration [Unknown]

NARRATIVE: CASE EVENT DATE: 20250805
